FAERS Safety Report 15167306 (Version 1)
Quarter: 2018Q3

REPORT INFORMATION
  Report Type: Report from Study
  Country: IT (occurrence: IT)
  Receive Date: 20180719
  Receipt Date: 20180719
  Transmission Date: 20181010
  Serious: Yes (Other)
  Sender: FDA-Public Use
  Company Number: IT-BAYER-2018-072528

PATIENT
  Age: 38 Year
  Sex: Male

DRUGS (1)
  1. ASPRO [Suspect]
     Active Substance: ASPIRIN\SODIUM BICARBONATE
     Indication: HEADACHE
     Dosage: 500 MG, ONCE
     Route: 049

REACTIONS (5)
  - Lip oedema [Recovered/Resolved]
  - Nausea [Recovered/Resolved]
  - Urticaria [Recovered/Resolved]
  - Abdominal pain [Recovered/Resolved]
  - Malaise [Recovered/Resolved]

NARRATIVE: CASE EVENT DATE: 20171123
